FAERS Safety Report 5055939-3 (Version None)
Quarter: 2006Q3

REPORT INFORMATION
  Report Type: 
  Country: None (occurrence: None)
  Receive Date: 20060717
  Receipt Date: 20060630
  Transmission Date: 20061208
  Serious: Yes (Hospitalization)
  Sender: FDA-Public Use
  Company Number: 2006RR-02884

PATIENT
  Age: 77 Year
  Sex: Female

DRUGS (3)
  1. SIMVASTATIN [Suspect]
     Indication: HYPERCHOLESTEROLAEMIA
     Dosage: 10 MG, QD, ORAL
     Route: 048
  2. DILTIAZEM BASICS (DILTIAZEM HYDROCHLORIDE) [Concomitant]
  3. INSULIN [Concomitant]

REACTIONS (3)
  - AUTOIMMUNE THROMBOCYTOPENIA [None]
  - CONTUSION [None]
  - EPISTAXIS [None]
